FAERS Safety Report 7412829-6 (Version None)
Quarter: 2011Q2

REPORT INFORMATION
  Report Type: 
  Country: None (occurrence: None)
  Receive Date: 20110413
  Receipt Date: 20110405
  Transmission Date: 20111010
  Serious: Yes (Hospitalization)
  Sender: FDA-Public Use
  Company Number: B0711740A

PATIENT
  Sex: Male
  Weight: 64 kg

DRUGS (23)
  1. CYCLOSPORINE [Concomitant]
     Dosage: 140MG PER DAY
     Route: 065
     Dates: start: 20090101, end: 20090108
  2. CYCLOSPORINE [Concomitant]
     Dosage: 130MG PER DAY
     Route: 065
     Dates: start: 20081226, end: 20081226
  3. CARBENIN [Concomitant]
     Dosage: 1G PER DAY
     Route: 042
     Dates: start: 20081217, end: 20090105
  4. AMBISOME [Concomitant]
     Dosage: 150MG PER DAY
     Route: 042
     Dates: start: 20081211, end: 20081223
  5. CYCLOSPORINE [Concomitant]
     Indication: IMMUNOSUPPRESSION
     Dosage: 50MG PER DAY
     Route: 065
     Dates: start: 20081225, end: 20081225
  6. CYCLOSPORINE [Concomitant]
     Dosage: 100MG PER DAY
     Route: 065
     Dates: start: 20090112, end: 20090112
  7. GANCICLOVIR SODIUM [Concomitant]
     Dosage: 320MG PER DAY
     Dates: start: 20081217, end: 20090104
  8. ALKERAN [Suspect]
     Indication: STEM CELL TRANSPLANT
     Dosage: 117MGM2 PER DAY
     Route: 042
     Dates: start: 20081209, end: 20091210
  9. CYCLOSPORINE [Concomitant]
     Dosage: 40MG PER DAY
     Route: 065
     Dates: start: 20090115, end: 20090119
  10. HABEKACIN [Concomitant]
     Dosage: 400MG PER DAY
     Dates: start: 20081222, end: 20090112
  11. FLUDARA [Concomitant]
     Indication: STEM CELL TRANSPLANT
     Dosage: 42MG PER DAY
     Route: 042
     Dates: start: 20081204, end: 20081208
  12. CYCLOSPORINE [Concomitant]
     Dosage: 180MG PER DAY
     Route: 065
     Dates: start: 20081227, end: 20081230
  13. CYCLOSPORINE [Concomitant]
     Dosage: 160MG PER DAY
     Route: 065
     Dates: start: 20081231, end: 20081231
  14. CYCLOSPORINE [Concomitant]
     Dosage: 60MG PER DAY
     Route: 065
     Dates: start: 20090114, end: 20090114
  15. HEPARIN SODIUM [Concomitant]
     Dosage: 6.5IU3 PER DAY
     Dates: start: 20081217, end: 20090109
  16. CYCLOSPORINE [Concomitant]
     Dosage: 120MG PER DAY
     Route: 065
     Dates: start: 20090110, end: 20090111
  17. CYCLOSPORINE [Concomitant]
     Dosage: 100MG PER DAY
     Route: 048
     Dates: start: 20090120, end: 20090127
  18. URSO 250 [Concomitant]
     Dosage: 600MG PER DAY
     Route: 048
     Dates: start: 20081015
  19. GRAN [Concomitant]
     Dates: start: 20090207, end: 20090227
  20. CYCLOSPORINE [Concomitant]
     Dosage: 130MG PER DAY
     Route: 065
     Dates: start: 20090109, end: 20090109
  21. CYCLOSPORINE [Concomitant]
     Dosage: 80MG PER DAY
     Route: 065
     Dates: start: 20090113, end: 20090113
  22. CYCLOSPORINE [Concomitant]
     Dosage: 70MG PER DAY
     Route: 048
     Dates: start: 20090128, end: 20090203
  23. CYCLOSPORINE [Concomitant]
     Dosage: 100MG PER DAY
     Route: 048
     Dates: start: 20090312

REACTIONS (2)
  - FEBRILE NEUTROPENIA [None]
  - CYTOMEGALOVIRUS VIRAEMIA [None]
